FAERS Safety Report 10913483 (Version 1)
Quarter: 2015Q1

REPORT INFORMATION
  Report Type: Spontaneous
  Country: US (occurrence: US)
  Receive Date: 20150313
  Receipt Date: 20150313
  Transmission Date: 20150721
  Serious: Yes (Other)
  Sender: FDA-Public Use
  Company Number: US-BAYER-2015-037865

PATIENT
  Sex: Female

DRUGS (2)
  1. MIRENA [Suspect]
     Active Substance: LEVONORGESTREL
     Dosage: 20 MCG/24HR, CONT
     Route: 015
  2. MIRENA [Suspect]
     Active Substance: LEVONORGESTREL
     Dosage: 20 MCG/24HR, CONT
     Route: 015
     Dates: start: 201205

REACTIONS (11)
  - Genital haemorrhage [None]
  - Discomfort [None]
  - Nervousness [None]
  - Medical device pain [None]
  - Mood altered [None]
  - Coital bleeding [None]
  - Dyspareunia [None]
  - Migraine [None]
  - Device expulsion [None]
  - Stress [None]
  - Post procedural discomfort [None]

NARRATIVE: CASE EVENT DATE: 2012
